FAERS Safety Report 4805372-1 (Version None)
Quarter: 2005Q4

REPORT INFORMATION
  Report Type: 
  Country: None (occurrence: None)
  Receive Date: 20051018
  Receipt Date: 20051005
  Transmission Date: 20060501
  Serious: Yes (Hospitalization)
  Sender: FDA-Public Use
  Company Number: 2005-BP-18118RO

PATIENT
  Age: 57 Year
  Sex: Female

DRUGS (5)
  1. PSEUDOEPHEDRINE HCL [Suspect]
     Indication: NASAL CONGESTION
     Dosage: PO
     Route: 048
  2. FLUOXETINE [Concomitant]
  3. LEVOTHYROXINE SODIUM [Concomitant]
  4. NABUMETONE [Concomitant]
  5. CEFACLOR [Concomitant]

REACTIONS (4)
  - DISEASE RECURRENCE [None]
  - RASH [None]
  - SKIN TEST POSITIVE [None]
  - TOXIC EPIDERMAL NECROLYSIS [None]
